FAERS Safety Report 5392280-3 (Version None)
Quarter: 2007Q3

REPORT INFORMATION
  Report Type: 
  Country: None (occurrence: None)
  Receive Date: 20070720
  Receipt Date: 20070716
  Transmission Date: 20080115
  Serious: Yes (Other)
  Sender: FDA-Public Use
  Company Number: US-ASTRAZENECA-2007UW03011

PATIENT
  Age: 23 Year
  Sex: Male

DRUGS (2)
  1. SEROQUEL [Suspect]
     Indication: SCHIZOPHRENIA
     Route: 048
     Dates: start: 20050905, end: 20051115
  2. RISPERDAL [Suspect]
     Dates: start: 20030423, end: 20040423

REACTIONS (2)
  - NERVOUS SYSTEM DISORDER [None]
  - TARDIVE DYSKINESIA [None]
